FAERS Safety Report 6525981-1 (Version None)
Quarter: 2010Q1

REPORT INFORMATION
  Report Type: 
  Country: None (occurrence: None)
  Receive Date: 20100104
  Receipt Date: 20091228
  Transmission Date: 20100710
  Serious: Yes (Hospitalization, Other)
  Sender: FDA-Public Use
  Company Number: AR-ROXANE LABORATORIES, INC.-2009-RO-01292RO

PATIENT
  Age: 29 Year
  Sex: Male

DRUGS (10)
  1. AZATHIOPRINE [Suspect]
     Indication: PROPHYLAXIS
  2. CYCLOPHOSPHAMIDE [Suspect]
     Indication: PROPHYLAXIS
  3. PREDNISONE [Suspect]
     Indication: PROPHYLAXIS
  4. GANCICLOVIR [Suspect]
     Indication: CYTOMEGALOVIRUS INFECTION
  5. CEFTAZIDIME [Suspect]
     Indication: STAPHYLOCOCCAL ABSCESS
  6. CEFTAZIDIME [Suspect]
     Indication: PSEUDOMONAS INFECTION
  7. VANCOMYCIN [Suspect]
     Indication: STAPHYLOCOCCAL ABSCESS
  8. VANCOMYCIN [Suspect]
     Indication: PSEUDOMONAS INFECTION
  9. AMBISOME [Concomitant]
     Indication: HISTOPLASMOSIS DISSEMINATED
  10. ITRACONAZOLE [Concomitant]
     Indication: PROPHYLAXIS
     Dosage: 200 MG
     Route: 048

REACTIONS (15)
  - AMERICAN TRYPANOSOMIASIS [None]
  - CYTOMEGALOVIRUS INFECTION [None]
  - DRUG INEFFECTIVE [None]
  - ENDOCRINE DISORDER [None]
  - FINGER AMPUTATION [None]
  - HEPATITIS C [None]
  - HEPATORENAL FAILURE [None]
  - HEPATOSPLENOMEGALY [None]
  - HERPES SIMPLEX [None]
  - HISTOPLASMOSIS DISSEMINATED [None]
  - METABOLIC DISORDER [None]
  - PANCYTOPENIA [None]
  - PSEUDOMONAS INFECTION [None]
  - STAPHYLOCOCCAL ABSCESS [None]
  - TRANSPLANT REJECTION [None]
